FAERS Safety Report 23939871 (Version 1)
Quarter: 2024Q2

REPORT INFORMATION
  Report Type: Spontaneous
  Country: US (occurrence: US)
  Receive Date: 20240605
  Receipt Date: 20240605
  Transmission Date: 20240715
  Serious: Yes (Hospitalization, Other)
  Sender: FDA-Public Use
  Company Number: US-AstraZeneca-CH-00635927A

PATIENT
  Sex: Male

DRUGS (1)
  1. STRENSIQ [Suspect]
     Active Substance: ASFOTASE ALFA
     Indication: Product used for unknown indication
     Route: 065

REACTIONS (6)
  - Nephrolithiasis [Unknown]
  - Fatigue [Unknown]
  - Depression [Unknown]
  - Somnolence [Unknown]
  - Gait disturbance [Unknown]
  - Pain [Unknown]
